FAERS Safety Report 12990484 (Version 1)
Quarter: 2016Q4

REPORT INFORMATION
  Report Type: Spontaneous
  Country: FR (occurrence: FR)
  Receive Date: 20161201
  Receipt Date: 20161201
  Transmission Date: 20170207
  Serious: Yes (Death, Other)
  Sender: FDA-Public Use
  Company Number: PHHY2016FR164510

PATIENT
  Age: 6 Year
  Sex: Male

DRUGS (6)
  1. METHYLPREDNISOLONE. [Concomitant]
     Active Substance: METHYLPREDNISOLONE
     Indication: TRANSPLANT
     Route: 065
  2. VANCOMYCIN [Suspect]
     Active Substance: VANCOMYCIN
     Indication: PRODUCT USED FOR UNKNOWN INDICATION
     Route: 065
  3. TACROLIMUS. [Suspect]
     Active Substance: TACROLIMUS
     Indication: TRANSPLANT
     Route: 065
  4. BASILIXIMAB [Concomitant]
     Active Substance: BASILIXIMAB
     Indication: TRANSPLANT
     Route: 065
  5. SIROLIMUS. [Concomitant]
     Active Substance: SIROLIMUS
     Indication: TRANSPLANT
     Route: 065
  6. AZATHIOPRIN [Concomitant]
     Active Substance: AZATHIOPRINE
     Indication: TRANSPLANT
     Route: 065

REACTIONS (5)
  - Condition aggravated [Unknown]
  - Leukoencephalopathy [Unknown]
  - Encephalitis [Unknown]
  - Drug reaction with eosinophilia and systemic symptoms [Unknown]
  - Multiple organ dysfunction syndrome [Fatal]
